FAERS Safety Report 7358189-0 (Version None)
Quarter: 2011Q1

REPORT INFORMATION
  Report Type: 
  Country: None (occurrence: None)
  Receive Date: 20110317
  Receipt Date: 20110307
  Transmission Date: 20110831
  Serious: Yes (Hospitalization, Other)
  Sender: FDA-Public Use
  Company Number: JP-ROCHE-629123

PATIENT
  Sex: Male
  Weight: 65 kg

DRUGS (32)
  1. PURSENNID [Concomitant]
     Route: 048
     Dates: start: 20090603
  2. BAKTAR [Concomitant]
     Route: 048
     Dates: start: 20090717
  3. ISODINE [Concomitant]
     Dosage: DOSE FORM: GARGLE, ROUTE: OROPHARINGEAL, NOTE: DOSAGE ADJUSTED.
     Route: 050
     Dates: start: 20090327
  4. MYCOPHENOLATE MOFETIL [Suspect]
     Indication: PROPHYLAXIS AGAINST TRANSPLANT REJECTION
     Route: 048
     Dates: start: 20090310, end: 20090419
  5. SIMULECT [Suspect]
     Indication: PROPHYLAXIS AGAINST TRANSPLANT REJECTION
     Dosage: ROUTE: INTRAVENOUS (NOT OTHERWISE SPECIFIED).
     Route: 042
     Dates: start: 20090309, end: 20090309
  6. PARIET [Concomitant]
     Route: 048
     Dates: start: 20090310
  7. HUMALOG [Concomitant]
     Dosage: DOSE:24 UNITS DAILY; 10 UNITS IN MORNING,8 UNITS IN DAYTIME AND 6 UNITS IN EVENING
     Route: 058
     Dates: start: 20090401
  8. ASPIRIN [Concomitant]
     Dosage: FORM:ENTERIC
     Route: 048
     Dates: start: 20090408
  9. SPANIDIN [Concomitant]
     Route: 041
     Dates: start: 20090624, end: 20090626
  10. ORTHOCLONE OKT3 [Concomitant]
     Route: 042
     Dates: start: 20090715, end: 20090722
  11. MEDROL [Suspect]
     Route: 048
     Dates: start: 20091229
  12. MAALOX [Concomitant]
     Route: 048
     Dates: start: 20090310
  13. ARGAMATE [Concomitant]
     Route: 048
     Dates: start: 20090323
  14. AMLODIPINE [Concomitant]
     Dosage: DRUG: AMLODIN OD
     Route: 048
     Dates: start: 20090325
  15. DETANTOL R [Concomitant]
     Dosage: FORM: SUSTAINED RELEASE TABLET
     Route: 048
     Dates: start: 20090326
  16. MYONAL [Concomitant]
     Dosage: DRUG REPORTED AS MYORELARK(
     Route: 048
     Dates: start: 20091208, end: 20091212
  17. MEDROL [Suspect]
     Indication: PROPHYLAXIS AGAINST TRANSPLANT REJECTION
     Dosage: 4-40 MG
     Route: 048
     Dates: start: 20080401
  18. NEORAL [Suspect]
     Indication: PROPHYLAXIS AGAINST TRANSPLANT REJECTION
     Dosage: 200 - 225 MG
     Route: 048
     Dates: start: 20090311, end: 20091228
  19. PERSANTIN [Concomitant]
     Dosage: DRUG: PERSANTIN-L, FORM: SUSTAINED RELEASE CAPSULE
     Route: 048
     Dates: start: 20090310
  20. ADALAT [Concomitant]
     Dosage: FORM: SUSTAINED RELEASE TABLET
     Route: 048
     Dates: start: 20090327
  21. ZYLORIC [Concomitant]
     Route: 048
     Dates: start: 20090520
  22. SPANIDIN [Concomitant]
     Route: 041
     Dates: start: 20090615, end: 20090621
  23. SPANIDIN [Concomitant]
     Route: 041
     Dates: start: 20090817, end: 20090823
  24. SOLETON [Concomitant]
     Route: 048
     Dates: start: 20091208, end: 20091212
  25. MYCOPHENOLATE MOFETIL [Suspect]
     Dosage: DOSE DECREASED
     Route: 048
     Dates: start: 20090420, end: 20090420
  26. MYCOPHENOLATE MOFETIL [Suspect]
     Dosage: DOSE DECREASED
     Route: 048
     Dates: start: 20090421, end: 20090421
  27. SIMULECT [Suspect]
     Dosage: ROUTE: INTRAVENOUS (NOT OTHERWISE SPECIFIED).
     Route: 042
     Dates: start: 20090313, end: 20090313
  28. SELBEX [Concomitant]
     Dosage: DRUG REPORTED AS SELTEPNON
     Route: 048
     Dates: start: 20091208, end: 20091212
  29. MYCOPHENOLATE MOFETIL [Suspect]
     Route: 048
     Dates: start: 20090422, end: 20091228
  30. MEDROL [Suspect]
     Route: 048
     Dates: end: 20091228
  31. LASIX [Concomitant]
     Route: 048
     Dates: start: 20090318
  32. SOLU-MEDRONE [Concomitant]
     Route: 041
     Dates: start: 20090608, end: 20090610

REACTIONS (21)
  - HERPES ZOSTER [None]
  - IRON DEFICIENCY ANAEMIA [None]
  - VOMITING [None]
  - KIDNEY TRANSPLANT REJECTION [None]
  - CONSTIPATION [None]
  - PYREXIA [None]
  - CYTOMEGALOVIRUS TEST POSITIVE [None]
  - HYPERKALAEMIA [None]
  - NEPHROGENIC ANAEMIA [None]
  - HYPERURICAEMIA [None]
  - HYPERVOLAEMIA [None]
  - ACNE [None]
  - DERMAL CYST [None]
  - HYPERTENSION [None]
  - BACK PAIN [None]
  - STOMATITIS [None]
  - PANCYTOPENIA [None]
  - DIABETES MELLITUS [None]
  - PYURIA [None]
  - NASOPHARYNGITIS [None]
  - INFLUENZA LIKE ILLNESS [None]
